FAERS Safety Report 4313455-8 (Version None)
Quarter: 2004Q1

REPORT INFORMATION
  Report Type: 
  Country: None (occurrence: None)
  Receive Date: 20040305
  Receipt Date: 20040305
  Transmission Date: 20041129
  Serious: Yes (Hospitalization)
  Sender: FDA-Public Use
  Company Number: None

PATIENT
  Age: 70 Year
  Sex: Female
  Weight: 60.3284 kg

DRUGS (6)
  1. TARCEVA (OSI-774) [Suspect]
     Indication: PANCREATIC CARCINOMA METASTATIC
     Dosage: 150MG/DAY PO
     Route: 048
     Dates: start: 20040115, end: 20040226
  2. CAPECITABINE [Suspect]
     Indication: PANCREATIC CARCINOMA METASTATIC
     Dosage: 750MG/DAY PO
     Route: 048
     Dates: start: 20040115, end: 20040226
  3. NPH INSULIN [Concomitant]
  4. REGULAR INSULIN [Concomitant]
  5. MEGACE [Concomitant]
  6. FENTANYL [Concomitant]

REACTIONS (5)
  - ANOREXIA [None]
  - DEHYDRATION [None]
  - GASTROOESOPHAGEAL REFLUX DISEASE [None]
  - GLOSSODYNIA [None]
  - NAUSEA [None]
